FAERS Safety Report 9540861 (Version 1)
Quarter: 2013Q3

REPORT INFORMATION
  Report Type: Spontaneous
  Country: US (occurrence: US)
  Receive Date: 20130920
  Receipt Date: 20130920
  Transmission Date: 20140515
  Serious: Yes (Hospitalization)
  Sender: FDA-Public Use
  Company Number: US-JNJFOC-20130903793

PATIENT
  Age: 8 Month
  Sex: Male
  Weight: 8.16 kg

DRUGS (5)
  1. CONCENTRATED MOTRIN INFANTS^ DROPS BERRY FLAVOR [Suspect]
     Route: 048
  2. CONCENTRATED MOTRIN INFANTS^ DROPS BERRY FLAVOR [Suspect]
     Indication: PYREXIA
     Route: 048
     Dates: start: 20130902, end: 20130903
  3. TYLENOL INFANTS DROPS [Suspect]
     Route: 065
  4. TYLENOL INFANTS DROPS [Suspect]
     Indication: PYREXIA
     Route: 065
  5. AMOXICILLIN [Concomitant]
     Indication: VIRAL INFECTION
     Route: 065

REACTIONS (2)
  - Pyrexia [Recovered/Resolved]
  - Drug ineffective [Unknown]
